FAERS Safety Report 5048023-6 (Version None)
Quarter: 2006Q3

REPORT INFORMATION
  Report Type: 
  Country: None (occurrence: None)
  Receive Date: 20060710
  Receipt Date: 20060710
  Transmission Date: 20061208
  Serious: Yes (Hospitalization)
  Sender: FDA-Public Use
  Company Number: None

PATIENT
  Age: 67 Year
  Sex: Male
  Weight: 79.8 kg

DRUGS (1)
  1. ERBITUX [Suspect]
     Dosage: 2 MG/ML

REACTIONS (1)
  - NO ADVERSE EFFECT [None]
